FAERS Safety Report 18783367 (Version 1)
Quarter: 2021Q1

REPORT INFORMATION
  Report Type: Report from Study
  Country: FR (occurrence: FR)
  Receive Date: 20210125
  Receipt Date: 20210125
  Transmission Date: 20210419
  Serious: Yes (Death, Life-Threatening, Hospitalization)
  Sender: FDA-Public Use
  Company Number: FR-ROCHE-2754406

PATIENT
  Age: 62 Year
  Sex: Female

DRUGS (6)
  1. CARBOPLATIN. [Suspect]
     Active Substance: CARBOPLATIN
     Indication: OVARIAN CANCER
     Dosage: MOST RECENT DOSE PRIOR TO SAE ON 10/JAN/2018
     Route: 042
     Dates: start: 20170918
  2. BLINDED ATEZOLIZUMAB [Suspect]
     Active Substance: ATEZOLIZUMAB
     Indication: OVARIAN CANCER
     Dosage: THE LAST DOSE BEFORE THE ADVERSE EVENTS WERE REPORTED AS SUCH:ON 26?JUN?2018 FOR ATEZOLIZUMAB
     Route: 042
     Dates: start: 20170918
  3. DOXORUBICIN [Suspect]
     Active Substance: DOXORUBICIN
     Indication: OVARIAN CANCER
     Route: 042
     Dates: start: 20170918
  4. BISOCE [Concomitant]
     Active Substance: BISOPROLOL
     Route: 048
  5. BEVACIZUMAB. [Suspect]
     Active Substance: BEVACIZUMAB
     Indication: OVARIAN CANCER
     Dosage: THE LAST DOSE BEFORE THE ADVERSE EVENTS WERE REPORTED AS SUCH:ON 26?JUN?2018 FOR BEVACIZUMAB
     Route: 042
     Dates: start: 20170918
  6. LEVOTHYROX [Concomitant]
     Active Substance: LEVOTHYROXINE
     Route: 048

REACTIONS (4)
  - Renal failure [Recovered/Resolved]
  - Hypercalcaemia [Not Recovered/Not Resolved]
  - Loss of consciousness [Fatal]
  - Cardiac arrest [Fatal]

NARRATIVE: CASE EVENT DATE: 20180717
